FAERS Safety Report 10861519 (Version 1)
Quarter: 2015Q1

REPORT INFORMATION
  Report Type: Spontaneous
  Country: BR (occurrence: BR)
  Receive Date: 20150224
  Receipt Date: 20150224
  Transmission Date: 20150721
  Serious: Yes (Hospitalization, Other)
  Sender: FDA-Public Use
  Company Number: PHHY2015BR016566

PATIENT
  Sex: Female

DRUGS (1)
  1. DIOVAN AMLO FIX [Suspect]
     Active Substance: AMLODIPINE\VALSARTAN
     Indication: HYPERTENSION
     Dosage: 1 DF, QD
     Route: 048
     Dates: end: 201411

REACTIONS (8)
  - Arrhythmia [Recovering/Resolving]
  - Uterine polyp [Recovered/Resolved]
  - Syncope [Recovered/Resolved]
  - Heart rate decreased [Recovering/Resolving]
  - Peripheral swelling [Recovering/Resolving]
  - Labyrinthitis [Recovered/Resolved]
  - Heart rate increased [Recovering/Resolving]
  - Thirst [Not Recovered/Not Resolved]

NARRATIVE: CASE EVENT DATE: 2013
